FAERS Safety Report 21889920 (Version 1)
Quarter: 2023Q1

REPORT INFORMATION
  Report Type: Spontaneous
  Country: US (occurrence: None)
  Receive Date: 20230119
  Receipt Date: 20230119
  Transmission Date: 20230417
  Serious: Yes (Death)
  Sender: FDA-Public Use
  Company Number: None

PATIENT
  Age: 81 Year
  Sex: Male
  Weight: 102.51 kg

DRUGS (32)
  1. CAPECITABINE [Suspect]
     Active Substance: CAPECITABINE
     Indication: Colon cancer
     Dosage: FREQUENCY : TWICE A DAY;?
     Route: 048
     Dates: start: 20221231, end: 20230111
  2. ACETAZOLAMIDE [Concomitant]
     Active Substance: ACETAZOLAMIDE
  3. AZITHROMYCIN [Concomitant]
     Active Substance: AZITHROMYCIN
  4. BENZONATATE [Concomitant]
     Active Substance: BENZONATATE
  5. CARAFATE [Concomitant]
     Active Substance: SUCRALFATE
  6. CARTIA XT [Concomitant]
     Active Substance: DILTIAZEM HYDROCHLORIDE
  7. CEPHALEXIN [Concomitant]
     Active Substance: CEPHALEXIN
  8. COLACE [Concomitant]
     Active Substance: DOCUSATE SODIUM
  9. DILTIAZEM [Concomitant]
     Active Substance: DILTIAZEM
  10. DOCUSATE [Concomitant]
     Active Substance: DOCUSATE
  11. ELIQUIS [Concomitant]
     Active Substance: APIXABAN
  12. ENOXAPARIN [Concomitant]
     Active Substance: ENOXAPARIN
  13. FLOMAX [Concomitant]
     Active Substance: TAMSULOSIN HYDROCHLORIDE
  14. FUROSEMIDE [Concomitant]
     Active Substance: FUROSEMIDE
  15. GUAFENESIN AND CODEINE [Concomitant]
  16. HYDROCHLOROTHIAZIDE [Concomitant]
     Active Substance: HYDROCHLOROTHIAZIDE
  17. K-TAB [Concomitant]
     Active Substance: POTASSIUM CHLORIDE
  18. METRONIDAZOLE [Concomitant]
     Active Substance: METRONIDAZOLE
  19. MIRALAX [Concomitant]
     Active Substance: POLYETHYLENE GLYCOL 3350
  20. MIRTAZAPINE [Concomitant]
     Active Substance: MIRTAZAPINE
  21. NEOMYCIN [Concomitant]
     Active Substance: NEOMYCIN
  22. ONDANSETRON [Concomitant]
     Active Substance: ONDANSETRON
  23. OXYCODONE AND ACETAMINOPHEN [Concomitant]
     Active Substance: ACETAMINOPHEN\OXYCODONE HYDROCHLORIDE
  24. PANTOPRAZOLE [Concomitant]
     Active Substance: PANTOPRAZOLE
  25. POLYETHYLENE GYCOL 3350 [Concomitant]
  26. PROCHLORPERAZINE [Concomitant]
     Active Substance: PROCHLORPERAZINE
  27. SENOKOT [Concomitant]
     Active Substance: SENNOSIDES
  28. SPIRONOLACTONE [Concomitant]
     Active Substance: SPIRONOLACTONE
  29. SYMBICORT [Concomitant]
     Active Substance: BUDESONIDE\FORMOTEROL FUMARATE DIHYDRATE
  30. TRAZODONE [Concomitant]
     Active Substance: TRAZODONE HYDROCHLORIDE
  31. TRELEGY ELLIPTA [Concomitant]
     Active Substance: FLUTICASONE FUROATE\UMECLIDINIUM BROMIDE\VILANTEROL TRIFENATATE
  32. VENTOLIN HFA [Concomitant]
     Active Substance: ALBUTEROL SULFATE

REACTIONS (1)
  - Death [None]

NARRATIVE: CASE EVENT DATE: 20230111
